FAERS Safety Report 9061901 (Version 1)
Quarter: 2013Q1

REPORT INFORMATION
  Report Type: Spontaneous
  Country: US (occurrence: None)
  Receive Date: 20130122
  Receipt Date: 20130122
  Transmission Date: 20140127
  Serious: Yes (Hospitalization)
  Sender: FDA-Public Use
  Company Number: DKLU1088082

PATIENT
  Age: 3 Year
  Sex: Male

DRUGS (7)
  1. COSMEGEN [Suspect]
     Indication: NEOPLASM MALIGNANT
     Dosage: 1 MG MILLIGRAM(S), 7TH CYCLE, INTRAVENOUS (NOT OTHERWISE SPECIFIED)
     Route: 042
     Dates: start: 20120724
  2. IFOSFAMIDE [Suspect]
     Dosage: 1.95 G (GRAM(S), 1 IN 3 WK, INTRAVENOUS (NOT OTHERWISE SPECIFIED)
     Route: 042
     Dates: start: 20120724
  3. DOXORUBICIN (DOXORUBICIN) (DOXORUBICIN) [Suspect]
     Dosage: 19.5 MG MILLIGRAM(S), 1 IN 3 WK, INTRAVENOUS (NOT OTHERWISE SPECIFIED
     Route: 042
     Dates: start: 20120724
  4. VINCRISTINE [Suspect]
     Dosage: 0.97 MG MILLIGRAM(S), 1 IN 3 WK, INTRAVENOUS (NOT OTHERWISE SPECIFIED)
     Route: 042
     Dates: start: 20121127
  5. BEVACIZUMAB (BEVACIZUMAB) [Suspect]
     Dosage: INTRAVENOUS (NOT OTHERWISE SPECIFIED)
     Route: 042
     Dates: start: 20121017
  6. CAPHOSOL [Concomitant]
  7. LACTULOSUM (LACTULOSE) [Concomitant]

REACTIONS (13)
  - Cough [None]
  - Diarrhoea [None]
  - Dehydration [None]
  - Hypophagia [None]
  - Pain [None]
  - Mucosal inflammation [None]
  - Asthenia [None]
  - Pallor [None]
  - Leukopenia [None]
  - Febrile neutropenia [None]
  - Fluid intake reduced [None]
  - Platelet count decreased [None]
  - Haemoglobin decreased [None]
